FAERS Safety Report 6106230-5 (Version None)
Quarter: 2009Q1

REPORT INFORMATION
  Report Type: 
  Country: None (occurrence: None)
  Receive Date: 20090306
  Receipt Date: 20090126
  Transmission Date: 20090719
  Serious: Yes (Hospitalization)
  Sender: FDA-Public Use
  Company Number: FR-ASTRAZENECA-2009CG00271

PATIENT
  Age: 712 Month
  Sex: Female
  Weight: 53 kg

DRUGS (24)
  1. CRESTOR [Suspect]
     Route: 048
  2. NOVATREX [Suspect]
     Indication: SARCOIDOSIS
     Route: 002
     Dates: start: 20080301, end: 20081201
  3. TRIATEC [Suspect]
     Route: 048
  4. DILTIAZEM HCL [Suspect]
     Indication: ATRIAL FIBRILLATION
     Route: 048
  5. DILATRANE [Suspect]
     Route: 048
  6. CORDARONE [Concomitant]
     Indication: ATRIAL FIBRILLATION
     Route: 048
     Dates: start: 20081127
  7. PREVISCAN [Concomitant]
  8. VENTOLIN [Concomitant]
  9. SERETIDE DISKUS [Concomitant]
  10. AERIUS [Concomitant]
  11. ACTONEL [Concomitant]
  12. OGASTORO [Concomitant]
  13. IMOVANE [Concomitant]
  14. DEBRIDAT [Concomitant]
  15. FORLAX [Concomitant]
  16. SPASFON [Concomitant]
  17. XANAX [Concomitant]
  18. DAFLON [Concomitant]
  19. SPECIAFOLDINE [Concomitant]
  20. EFFERALGAN [Concomitant]
  21. DIFFU K [Concomitant]
  22. TRANSILANE [Concomitant]
  23. SOLUPRED [Concomitant]
  24. SOLUPRED [Concomitant]

REACTIONS (4)
  - ASTHENIA [None]
  - COUGH [None]
  - DYSPNOEA [None]
  - LUNG DISORDER [None]
